FAERS Safety Report 19288060 (Version 1)
Quarter: 2021Q2

REPORT INFORMATION
  Report Type: Report from Study
  Country: HK (occurrence: HK)
  Receive Date: 20210521
  Receipt Date: 20210521
  Transmission Date: 20210717
  Serious: Yes (Other)
  Sender: FDA-Public Use
  Company Number: HK-ASTRAZENECA-2021A431724

PATIENT
  Age: 42 Year
  Sex: Female

DRUGS (2)
  1. OLAPARIB. [Suspect]
     Active Substance: OLAPARIB
     Indication: OVARIAN CANCER
     Route: 048
     Dates: start: 201703, end: 201901
  2. OLAPARIB. [Suspect]
     Active Substance: OLAPARIB
     Indication: OVARIAN CANCER
     Route: 048
     Dates: end: 201905

REACTIONS (6)
  - Nausea [Unknown]
  - Off label use [Unknown]
  - Tinnitus [Unknown]
  - Myeloid leukaemia [Unknown]
  - Anaemia [Unknown]
  - Hot flush [Unknown]
